APPROVED DRUG PRODUCT: KENALOG
Active Ingredient: TRIAMCINOLONE ACETONIDE
Strength: 0.147MG/GM **Federal Register determination that product was not discontinued or withdrawn for safety or effectiveness reasons**
Dosage Form/Route: SPRAY;TOPICAL
Application: N012104 | Product #001
Applicant: SUN PHARMACEUTICAL INDUSTRIES INC
Approved: Approved Prior to Jan 1, 1982 | RLD: Yes | RS: No | Type: DISCN